FAERS Safety Report 9781131 (Version 1)
Quarter: 2013Q4

REPORT INFORMATION
  Report Type: Report from Study
  Country: GR (occurrence: GR)
  Receive Date: 20131224
  Receipt Date: 20131224
  Transmission Date: 20140711
  Serious: Yes (Death, Hospitalization, Other)
  Sender: FDA-Public Use
  Company Number: GR-ASTELLAS-2013US013252

PATIENT
  Age: 73 Year
  Sex: Male

DRUGS (2)
  1. ERLOTINIB TABLET [Suspect]
     Indication: PRODUCT USED FOR UNKNOWN INDICATION
     Dosage: UNK
     Route: 065
     Dates: start: 20121012, end: 20130225
  2. GEMCITABINE HYDROCHLORIDE [Suspect]
     Indication: PRODUCT USED FOR UNKNOWN INDICATION
     Dosage: 1600 MG/M2, TOTAL DOSE
     Route: 065
     Dates: start: 20130228, end: 20130228

REACTIONS (8)
  - Death [Fatal]
  - Epistaxis [Unknown]
  - Anaemia [Unknown]
  - Malignant neoplasm progression [Unknown]
  - Mucous membrane disorder [Unknown]
  - Rash [Unknown]
  - Constipation [Unknown]
  - Decreased appetite [Unknown]
